FAERS Safety Report 25361945 (Version 2)
Quarter: 2025Q2

REPORT INFORMATION
  Report Type: Spontaneous
  Country: IT (occurrence: IT)
  Receive Date: 20250527
  Receipt Date: 20250604
  Transmission Date: 20250716
  Serious: Yes (Hospitalization, Other)
  Sender: ALEXION PHARMACEUTICALS
  Company Number: IT-SANDOZ-SDZ2025IT029871

PATIENT
  Age: 56 Year

DRUGS (2)
  1. FASLODEX [Suspect]
     Active Substance: FULVESTRANT
     Indication: Product used for unknown indication
     Route: 065
  2. FASLODEX [Suspect]
     Active Substance: FULVESTRANT

REACTIONS (3)
  - Rash erythematous [Recovering/Resolving]
  - Hypocalcaemia [Unknown]
  - Recall phenomenon [Unknown]
